FAERS Safety Report 12079821 (Version 2)
Quarter: 2017Q3

REPORT INFORMATION
  Report Type: Spontaneous
  Country: JP (occurrence: JP)
  Receive Date: 20160216
  Receipt Date: 20170824
  Transmission Date: 20171127
  Serious: Yes (Hospitalization, Other)
  Sender: FDA-Public Use
  Company Number: JP-SA-2016SA027423

PATIENT
  Age: 39 Year
  Sex: Male

DRUGS (4)
  1. 5-FU [Suspect]
     Active Substance: FLUOROURACIL
     Indication: COLON CANCER
     Dosage: 1000 MG/BODY
     Route: 065
  2. XELODA [Concomitant]
     Active Substance: CAPECITABINE
     Indication: COLON CANCER
     Route: 048
  3. ELPLAT [Suspect]
     Active Substance: OXALIPLATIN
     Indication: COLON CANCER
     Route: 033
  4. MITOMYCIN C [Suspect]
     Active Substance: MITOMYCIN
     Indication: COLON CANCER
     Dosage: 10 MG/BODY
     Route: 065

REACTIONS (9)
  - Encapsulating peritoneal sclerosis [Recovered/Resolved]
  - Abdominal pain [Recovered/Resolved]
  - Small intestinal stenosis [Recovered/Resolved]
  - Nausea [Recovered/Resolved]
  - Abdominal distension [Recovered/Resolved]
  - Weight decreased [Recovered/Resolved]
  - Intestinal obstruction [Recovered/Resolved]
  - Intestinal dilatation [Recovered/Resolved]
  - Abdominal adhesions [Recovered/Resolved]
